FAERS Safety Report 20421891 (Version 1)
Quarter: 2022Q1

REPORT INFORMATION
  Report Type: Spontaneous
  Country: DE (occurrence: DE)
  Receive Date: 20220203
  Receipt Date: 20220203
  Transmission Date: 20220424
  Serious: Yes (Other)
  Sender: FDA-Public Use
  Company Number: DE-BRISTOL-MYERS SQUIBB COMPANY-BMS-2022-014764

PATIENT
  Age: 66 Year
  Sex: Male

DRUGS (3)
  1. NIVOLUMAB [Suspect]
     Active Substance: NIVOLUMAB
     Indication: Metastatic malignant melanoma
     Dosage: UNK
     Route: 065
     Dates: start: 201604
  2. NIVOLUMAB [Suspect]
     Active Substance: NIVOLUMAB
     Dosage: 4 COURSES
     Route: 065
     Dates: start: 201801, end: 201803
  3. IPILIMUMAB [Suspect]
     Active Substance: IPILIMUMAB
     Indication: Metastatic malignant melanoma
     Dosage: 4 COURSES
     Route: 065
     Dates: start: 201801, end: 201803

REACTIONS (5)
  - Metastases to liver [Unknown]
  - Rhabdomyolysis [Unknown]
  - Renal failure [Unknown]
  - Hepatic failure [Unknown]
  - Paraparesis [Unknown]

NARRATIVE: CASE EVENT DATE: 20180501
